FAERS Safety Report 13092347 (Version 1)
Quarter: 2017Q1

REPORT INFORMATION
  Report Type: Spontaneous
  Country: US (occurrence: US)
  Receive Date: 20170106
  Receipt Date: 20170106
  Transmission Date: 20170428
  Serious: No
  Sender: FDA-Public Use
  Company Number: US-JNJFOC-20161106334

PATIENT
  Age: 65 Year
  Sex: Female
  Weight: 81.65 kg

DRUGS (1)
  1. CHILDRENS TYLENOL [Suspect]
     Active Substance: ACETAMINOPHEN
     Indication: PRODUCT USED FOR UNKNOWN INDICATION
     Dosage: LITTLE BIT ON FINGER ONE TIME FROM EACH BOTTLE- 5 BOTTLES
     Route: 048
     Dates: start: 20161104, end: 20161104

REACTIONS (6)
  - Product physical issue [Unknown]
  - Product odour abnormal [Unknown]
  - Product label issue [Unknown]
  - Intentional product use issue [Unknown]
  - Intentional product misuse [Unknown]
  - Drug administered to patient of inappropriate age [Unknown]

NARRATIVE: CASE EVENT DATE: 20161104
